FAERS Safety Report 4861573-8 (Version None)
Quarter: 2005Q4

REPORT INFORMATION
  Report Type: 
  Country: None (occurrence: None)
  Receive Date: 20051220
  Receipt Date: 20030922
  Transmission Date: 20060501
  Serious: Yes (Hospitalization)
  Sender: FDA-Public Use
  Company Number: CA-BRISTOL-MYERS SQUIBB COMPANY-12389490

PATIENT
  Age: 44 Year
  Sex: Female
  Weight: 100 kg

DRUGS (6)
  1. TEQUIN [Suspect]
     Indication: PNEUMONIA
     Route: 042
     Dates: start: 20030911, end: 20030919
  2. CLINDAMYCIN [Concomitant]
     Route: 042
  3. RANITIDINE [Concomitant]
     Route: 042
  4. METOCLOPRAMIDE HCL [Concomitant]
     Route: 042
  5. FUROSEMIDE [Concomitant]
     Route: 042
  6. HEPARIN [Concomitant]
     Dosage: DOSAGE FORM = UNITS
     Route: 058

REACTIONS (1)
  - HYPERGLYCAEMIA [None]
